FAERS Safety Report 8505088-4 (Version None)
Quarter: 2012Q2

REPORT INFORMATION
  Report Type: 
  Country: None (occurrence: None)
  Receive Date: 20120405
  Receipt Date: 20100615
  Transmission Date: 20120825
  Serious: Yes (Disabling)
  Sender: FDA-Public Use
  Company Number: PHHY2010US37538

PATIENT
  Age: 40 Year
  Sex: Female

DRUGS (3)
  1. PREMARIN [Concomitant]
  2. ZANTAC [Concomitant]
  3. RECLAST [Suspect]
     Indication: OSTEOPOROSIS
     Dosage: INTRAVENOUS
     Route: 042
     Dates: start: 20100323

REACTIONS (3)
  - PAIN [None]
  - MYALGIA [None]
  - ABASIA [None]
